FAERS Safety Report 18606038 (Version 1)
Quarter: 2020Q4

REPORT INFORMATION
  Report Type: Other
  Country: TH (occurrence: TH)
  Receive Date: 20201211
  Receipt Date: 20201211
  Transmission Date: 20210114
  Serious: No
  Sender: FDA-Public Use
  Company Number: TH-VIVUS, INC.-2020V1000148

PATIENT
  Age: 57 Year
  Sex: Female

DRUGS (30)
  1. PANCREAZE [Suspect]
     Active Substance: PANCRELIPASE AMYLASE\PANCRELIPASE LIPASE\PANCRELIPASE PROTEASE
     Indication: DIARRHOEA
  2. PREDNISOLONE. [Concomitant]
     Active Substance: PREDNISOLONE
     Indication: DIARRHOEA
  3. AZATHIOPRINE. [Concomitant]
     Active Substance: AZATHIOPRINE
     Indication: PROTEIN-LOSING GASTROENTEROPATHY
  4. METRONIDAZOLE. [Concomitant]
     Active Substance: METRONIDAZOLE
     Indication: ABDOMINAL DISTENSION
  5. METRONIDAZOLE. [Concomitant]
     Active Substance: METRONIDAZOLE
     Indication: STEATORRHOEA
  6. PANCREAZE [Suspect]
     Active Substance: PANCRELIPASE AMYLASE\PANCRELIPASE LIPASE\PANCRELIPASE PROTEASE
     Indication: STEATORRHOEA
  7. PANCREAZE [Suspect]
     Active Substance: PANCRELIPASE AMYLASE\PANCRELIPASE LIPASE\PANCRELIPASE PROTEASE
     Indication: DIARRHOEA
  8. CHOLESTYRAMINE. [Concomitant]
     Active Substance: CHOLESTYRAMINE
     Indication: PROTEIN-LOSING GASTROENTEROPATHY
  9. METRONIDAZOLE. [Concomitant]
     Active Substance: METRONIDAZOLE
     Indication: PROTEIN-LOSING GASTROENTEROPATHY
  10. METRONIDAZOLE. [Concomitant]
     Active Substance: METRONIDAZOLE
     Indication: DIARRHOEA
  11. PANCREAZE [Suspect]
     Active Substance: PANCRELIPASE AMYLASE\PANCRELIPASE LIPASE\PANCRELIPASE PROTEASE
     Indication: OEDEMA
  12. PANCREAZE [Suspect]
     Active Substance: PANCRELIPASE AMYLASE\PANCRELIPASE LIPASE\PANCRELIPASE PROTEASE
     Indication: PROTEIN-LOSING GASTROENTEROPATHY
  13. PREDNISOLONE. [Concomitant]
     Active Substance: PREDNISOLONE
     Indication: STEATORRHOEA
  14. CHOLESTYRAMINE. [Concomitant]
     Active Substance: CHOLESTYRAMINE
     Indication: DIARRHOEA
  15. CHOLESTYRAMINE. [Concomitant]
     Active Substance: CHOLESTYRAMINE
     Indication: DIARRHOEA
  16. PANCREAZE [Suspect]
     Active Substance: PANCRELIPASE AMYLASE\PANCRELIPASE LIPASE\PANCRELIPASE PROTEASE
     Indication: ABDOMINAL DISTENSION
  17. AZATHIOPRINE. [Concomitant]
     Active Substance: AZATHIOPRINE
     Indication: ABDOMINAL DISTENSION
  18. CHOLESTYRAMINE. [Concomitant]
     Active Substance: CHOLESTYRAMINE
     Indication: STEATORRHOEA
  19. METRONIDAZOLE. [Concomitant]
     Active Substance: METRONIDAZOLE
     Indication: DIARRHOEA
  20. METRONIDAZOLE. [Concomitant]
     Active Substance: METRONIDAZOLE
     Indication: OEDEMA
  21. PREDNISOLONE. [Concomitant]
     Active Substance: PREDNISOLONE
     Indication: ABDOMINAL DISTENSION
  22. AZATHIOPRINE. [Concomitant]
     Active Substance: AZATHIOPRINE
     Indication: OEDEMA
  23. AZATHIOPRINE. [Concomitant]
     Active Substance: AZATHIOPRINE
     Indication: STEATORRHOEA
  24. PREDNISOLONE. [Concomitant]
     Active Substance: PREDNISOLONE
     Indication: PROTEIN-LOSING GASTROENTEROPATHY
  25. AZATHIOPRINE. [Concomitant]
     Active Substance: AZATHIOPRINE
     Indication: DIARRHOEA
  26. AZATHIOPRINE. [Concomitant]
     Active Substance: AZATHIOPRINE
     Indication: DIARRHOEA
  27. CHOLESTYRAMINE. [Concomitant]
     Active Substance: CHOLESTYRAMINE
     Indication: ABDOMINAL DISTENSION
  28. PREDNISOLONE. [Concomitant]
     Active Substance: PREDNISOLONE
     Indication: DIARRHOEA
  29. PREDNISOLONE. [Concomitant]
     Active Substance: PREDNISOLONE
     Indication: OEDEMA
  30. CHOLESTYRAMINE. [Concomitant]
     Active Substance: CHOLESTYRAMINE
     Indication: OEDEMA

REACTIONS (2)
  - Off label use [Recovered/Resolved]
  - Drug ineffective for unapproved indication [Recovered/Resolved]
